FAERS Safety Report 13628662 (Version 2)
Quarter: 2017Q3

REPORT INFORMATION
  Report Type: Report from Study
  Country: US (occurrence: US)
  Receive Date: 20170608
  Receipt Date: 20170912
  Transmission Date: 20171127
  Serious: Yes (Other)
  Sender: FDA-Public Use
  Company Number: US-PFIZER INC-2017116555

PATIENT
  Age: 65 Year
  Sex: Male

DRUGS (1)
  1. BOSULIF [Suspect]
     Active Substance: BOSUTINIB MONOHYDRATE
     Dosage: 100 MG, UNK
     Dates: start: 20170314

REACTIONS (11)
  - Renal pain [Unknown]
  - Blindness [Unknown]
  - Pain [Unknown]
  - Feeling hot [Unknown]
  - Fatigue [Unknown]
  - Nausea [Unknown]
  - Deafness [Unknown]
  - Mood altered [Unknown]
  - Hyperhidrosis [Unknown]
  - Decreased appetite [Unknown]
  - Protein total increased [Unknown]

NARRATIVE: CASE EVENT DATE: 201708
